FAERS Safety Report 13475955 (Version 2)
Quarter: 2017Q2

REPORT INFORMATION
  Report Type: Report from Study
  Country: US (occurrence: US)
  Receive Date: 20170425
  Receipt Date: 20170609
  Transmission Date: 20170830
  Serious: No
  Sender: FDA-Public Use
  Company Number: US-009507513-1704USA004405

PATIENT
  Age: 68 Year
  Sex: Female

DRUGS (1)
  1. NOXAFIL [Suspect]
     Active Substance: POSACONAZOLE
     Indication: LOWER RESPIRATORY TRACT INFECTION FUNGAL
     Dosage: UNK, UNKNOWN
     Route: 048
     Dates: start: 20170324, end: 20170329

REACTIONS (2)
  - Diarrhoea [Recovering/Resolving]
  - Gastric dilatation [Recovering/Resolving]

NARRATIVE: CASE EVENT DATE: 20170326
